FAERS Safety Report 26110809 (Version 1)
Quarter: 2025Q4

REPORT INFORMATION
  Report Type: Spontaneous
  Country: US (occurrence: None)
  Receive Date: 20251202
  Receipt Date: 20251202
  Transmission Date: 20260117
  Serious: No
  Sender: CHIESI
  Company Number: US-CHIESI-2024CHF07329

PATIENT
  Sex: Male

DRUGS (1)
  1. REVCOVI [Suspect]
     Active Substance: ELAPEGADEMASE-LVLR
     Indication: Product used for unknown indication
     Dosage: UNK
     Route: 065

REACTIONS (3)
  - Weight increased [Unknown]
  - Pigmentation disorder [Unknown]
  - Disease recurrence [Unknown]
